FAERS Safety Report 6081823-2 (Version None)
Quarter: 2009Q1

REPORT INFORMATION
  Report Type: 
  Country: None (occurrence: None)
  Receive Date: 20090218
  Receipt Date: 20081219
  Transmission Date: 20090719
  Serious: No
  Sender: FDA-Public Use
  Company Number: US-BRISTOL-MYERS SQUIBB COMPANY-14100093

PATIENT
  Sex: Female

DRUGS (5)
  1. METFORMIN HCL [Suspect]
  2. SYNTHROID [Suspect]
  3. ISOPTIN [Suspect]
  4. VICODIN [Suspect]
  5. INDERAL [Suspect]

REACTIONS (3)
  - PRURITUS [None]
  - RASH [None]
  - SCAB [None]
